FAERS Safety Report 13180685 (Version 1)
Quarter: 2017Q1

REPORT INFORMATION
  Report Type: Spontaneous
  Country: PT (occurrence: PT)
  Receive Date: 20170202
  Receipt Date: 20170202
  Transmission Date: 20170428
  Serious: Yes (Hospitalization, Other)
  Sender: FDA-Public Use
  Company Number: PT-CANTON LABORATORIES, LLC-1062665

PATIENT
  Age: 51 Year
  Sex: Female

DRUGS (1)
  1. EC-NAPROSYN [Suspect]
     Active Substance: NAPROXEN
     Indication: RHEUMATOID ARTHRITIS
     Route: 065
     Dates: start: 20160826

REACTIONS (1)
  - Pancreatic abscess [Unknown]

NARRATIVE: CASE EVENT DATE: 20161001
